FAERS Safety Report 14690009 (Version 1)
Quarter: 2018Q1

REPORT INFORMATION
  Report Type: Other
  Country: US (occurrence: US)
  Receive Date: 20180328
  Receipt Date: 20180328
  Transmission Date: 20180509
  Serious: Yes (Other)
  Sender: FDA-Public Use
  Company Number: US-MARY KAY INC.-2044697

PATIENT
  Age: 21 Year
  Sex: Female

DRUGS (3)
  1. CLEAR PROOF CLARIFYING CLEANSING GEL ACNE MEDICATION [Suspect]
     Active Substance: SALICYLIC ACID
     Route: 061
     Dates: start: 20180316, end: 20180316
  2. CLEAR PROOF ACNE TREATMENT ACNE MEDICATION [Suspect]
     Active Substance: BENZOYL PEROXIDE
     Indication: ACNE
     Route: 061
     Dates: start: 20180316, end: 20180316
  3. CLEAR PROOF BLEMISH CONTROL TONER ACNE MEDICATION [Suspect]
     Active Substance: SALICYLIC ACID
     Route: 061
     Dates: start: 20180316, end: 20180316

REACTIONS (4)
  - Swelling face [Unknown]
  - Application site pruritus [Unknown]
  - Dyspnoea [Unknown]
  - Acne [Unknown]

NARRATIVE: CASE EVENT DATE: 20180317
